FAERS Safety Report 4672988-5 (Version None)
Quarter: 2005Q2

REPORT INFORMATION
  Report Type: 
  Country: None (occurrence: None)
  Receive Date: 20050524
  Receipt Date: 20050517
  Transmission Date: 20051028
  Serious: Yes (Other)
  Sender: FDA-Public Use
  Company Number: DE-MERCK-0505DEU00114

PATIENT

DRUGS (1)
  1. PRIMAXIN [Suspect]
     Route: 042

REACTIONS (1)
  - HEPATIC FAILURE [None]
